FAERS Safety Report 5463331-2 (Version None)
Quarter: 2007Q3

REPORT INFORMATION
  Report Type: 
  Country: None (occurrence: None)
  Receive Date: 20070920
  Receipt Date: 20070910
  Transmission Date: 20080115
  Serious: Yes (Hospitalization, Other)
  Sender: FDA-Public Use
  Company Number: HQWYE205818SEP07

PATIENT
  Age: 32 Year
  Sex: Male

DRUGS (5)
  1. SIROLIMUS [Suspect]
     Indication: IMMUNOSUPPRESSANT DRUG THERAPY
  2. SIROLIMUS [Suspect]
  3. TACROLIMUS [Concomitant]
     Indication: IMMUNOSUPPRESSANT DRUG THERAPY
     Dosage: UNSPECIFIED, TARGET LEVEL 3-7 NG/ML
  4. PREDNISOLONE [Concomitant]
     Indication: IMMUNOSUPPRESSANT DRUG THERAPY
  5. BASILIXIMAB [Concomitant]
     Indication: IMMUNOSUPPRESSANT DRUG THERAPY
     Dosage: UNSPECIFIED DOSE, ON DAYS 0 AND 4

REACTIONS (1)
  - FOCAL GLOMERULOSCLEROSIS [None]
